FAERS Safety Report 8421263-1 (Version None)
Quarter: 2012Q2

REPORT INFORMATION
  Report Type: 
  Country: None (occurrence: None)
  Receive Date: 20120608
  Receipt Date: 20120606
  Transmission Date: 20120825
  Serious: Yes (Other)
  Sender: FDA-Public Use
  Company Number: US-JNJFOC-20120411458

PATIENT
  Sex: Female
  Weight: 79.38 kg

DRUGS (5)
  1. TRAMADOL HCL [Suspect]
     Indication: PAIN
     Route: 065
  2. MULTI-VITAMINS [Suspect]
     Indication: PRODUCT USED FOR UNKNOWN INDICATION
     Route: 065
  3. TRICOR [Suspect]
     Indication: BLOOD TRIGLYCERIDES INCREASED
     Route: 065
  4. PROCRIT [Suspect]
     Indication: NEPHROGENIC ANAEMIA
     Dosage: EVERY 2 WEEKS AS NEEDED
     Route: 058
  5. LEVOTHYROXINE SODIUM [Suspect]
     Indication: PRODUCT USED FOR UNKNOWN INDICATION
     Route: 065

REACTIONS (2)
  - NEUROPATHY PERIPHERAL [None]
  - SNEEZING [None]
